FAERS Safety Report 4984368-3 (Version None)
Quarter: 2006Q2

REPORT INFORMATION
  Report Type: 
  Country: None (occurrence: None)
  Receive Date: 20060420
  Receipt Date: 20060406
  Transmission Date: 20061013
  Serious: Yes (Other)
  Sender: FDA-Public Use
  Company Number: 212874

PATIENT
  Age: 38 Year
  Sex: Female

DRUGS (14)
  1. HERCEPTIN [Suspect]
     Indication: BREAST CANCER
     Dosage: Q3W,
  2. GOSERELIN (GOSERELIN) [Concomitant]
  3. SELENIUM (SELENIUM) [Concomitant]
  4. SENNA (SENNA) [Concomitant]
  5. KELP (IODINE NOS) [Concomitant]
  6. ASCORBIC ACID [Concomitant]
  7. VITAMIN D (CHOLECALCIFEROL) [Concomitant]
  8. PROGESTERONE CREAM (PROGESTERONE) [Concomitant]
  9. DOXORUBICIN HCL [Concomitant]
  10. CYCLOPHOSPHAMIDE [Concomitant]
  11. METHOTREXATE [Concomitant]
  12. FLUOROURACIL [Concomitant]
  13. RADIOTHERAPY (RADIATION THERAPY) [Concomitant]
  14. TAMOXIFEN CITRATE [Concomitant]

REACTIONS (4)
  - DIZZINESS [None]
  - PALPITATIONS [None]
  - VENTRICULAR EXTRASYSTOLES [None]
  - VENTRICULAR TACHYCARDIA [None]
